FAERS Safety Report 9312367 (Version 2)
Quarter: 2013Q2

REPORT INFORMATION
  Report Type: Spontaneous
  Country: US (occurrence: US)
  Receive Date: 20130528
  Receipt Date: 20130618
  Transmission Date: 20140414
  Serious: Yes (Other)
  Sender: FDA-Public Use
  Company Number: US-CELGENEUS-163-C4047-13041150

PATIENT
  Age: 75 Year
  Sex: Female
  Weight: 67.6 kg

DRUGS (27)
  1. POMALYST [Suspect]
     Indication: PLASMA CELL MYELOMA
     Dosage: 4 MILLIGRAM
     Route: 065
     Dates: start: 20130307, end: 20130321
  2. POMALYST [Suspect]
     Dosage: 4 MILLIGRAM
     Route: 048
     Dates: start: 20130424
  3. DEXAMETHASONE [Suspect]
     Indication: PLASMA CELL MYELOMA
     Dosage: 40 MILLIGRAM
     Route: 065
     Dates: start: 20130307, end: 20130328
  4. DEXAMETHASONE [Suspect]
     Dosage: 40 MILLIGRAM
     Route: 065
     Dates: start: 20121212, end: 20130102
  5. DEXAMETHASONE [Suspect]
     Dosage: 40 MILLIGRAM
     Route: 065
     Dates: start: 20130424
  6. ANTARA [Concomitant]
     Indication: BLOOD CHOLESTEROL INCREASED
     Dosage: 130 MILLIGRAM
     Route: 048
     Dates: start: 20110920
  7. OMEPRAZOLE [Concomitant]
     Indication: ABDOMINAL DISCOMFORT
     Dosage: 80 MILLIGRAM
     Route: 048
     Dates: start: 20110920
  8. ASPIRIN [Concomitant]
     Indication: CAREGIVER
     Dosage: 81 MILLIGRAM
     Route: 048
     Dates: start: 20110920, end: 20130403
  9. ZOFRAN [Concomitant]
     Indication: NAUSEA
     Dosage: 8 MILLIGRAM
     Route: 048
     Dates: start: 200909
  10. FENTANYL [Concomitant]
     Indication: PAIN
     Dosage: 50 MICROGRAM
     Route: 062
     Dates: start: 20081028
  11. OXYCODONE [Concomitant]
     Indication: PAIN
     Dosage: 5 MILLIGRAM
     Route: 048
     Dates: start: 20061028
  12. TYLENOL EXTRA STRENGTH [Concomitant]
     Indication: PAIN
     Route: 048
     Dates: start: 200809
  13. CALCIUM + VITAMIN D [Concomitant]
     Indication: SUPPLEMENTATION THERAPY
     Dosage: 2400 MILLIGRAM
     Route: 048
     Dates: start: 200809
  14. GABAPENTIN [Concomitant]
     Indication: PERIPHERAL SENSORY NEUROPATHY
     Dosage: 400 MILLIGRAM
     Route: 048
     Dates: start: 201111
  15. GABAPENTIN [Concomitant]
     Dosage: 600 MILLIGRAM
     Route: 048
     Dates: start: 201111
  16. IMODIUM [Concomitant]
     Indication: DIARRHOEA
     Dosage: 2 MILLIGRAM
     Route: 048
     Dates: start: 2008
  17. MIRAPEX [Concomitant]
     Indication: RESTLESS LEGS SYNDROME
     Dosage: .25 MILLIGRAM
     Route: 048
     Dates: start: 20120323
  18. SPIRONOLACTONE [Concomitant]
     Indication: FLUID RETENTION
     Dosage: 100 MILLIGRAM
     Route: 048
     Dates: start: 201207
  19. VITAMIN B6 [Concomitant]
     Indication: SUPPLEMENTATION THERAPY
     Dosage: 200 MILLIGRAM
     Route: 048
     Dates: start: 201301
  20. VITAMIN B12 [Concomitant]
     Indication: PRODUCT USED FOR UNKNOWN INDICATION
  21. FLUCONAZOLE [Concomitant]
     Indication: MUCOSAL INFLAMMATION
     Dosage: 200 MILLIGRAM
     Route: 048
     Dates: start: 20121219
  22. FUROSEMIDE [Concomitant]
     Indication: FLUID RETENTION
     Dosage: 20 MILLIGRAM
     Route: 048
     Dates: start: 201212
  23. ALPRAZOLAM [Concomitant]
     Indication: ANXIETY
     Dosage: .5 MILLIGRAM
     Route: 048
     Dates: start: 20101116, end: 20130403
  24. ZOMETA [Concomitant]
     Indication: DRUG THERAPY
     Dosage: 4 MILLIGRAM
     Route: 041
     Dates: start: 2008
  25. LIDOCAINE [Concomitant]
     Indication: NAIL OPERATION
     Route: 041
     Dates: start: 20130227, end: 20130227
  26. BACITRACIN [Concomitant]
     Indication: NAIL OPERATION
     Route: 061
     Dates: start: 20130227, end: 20130227
  27. NEOSPORIN [Concomitant]
     Indication: NAIL OPERATION
     Route: 061
     Dates: start: 20130227, end: 20130306

REACTIONS (3)
  - International normalised ratio increased [Recovered/Resolved]
  - Pulmonary embolism [Not Recovered/Not Resolved]
  - Deep vein thrombosis [Not Recovered/Not Resolved]
